FAERS Safety Report 9471480 (Version 1)
Quarter: 2013Q3

REPORT INFORMATION
  Report Type: Spontaneous
  Country: FR (occurrence: FR)
  Receive Date: 20130822
  Receipt Date: 20130822
  Transmission Date: 20140515
  Serious: Yes (Hospitalization)
  Sender: FDA-Public Use
  Company Number: FR-JNJFOC-20130809204

PATIENT
  Age: 18 Year
  Sex: Male

DRUGS (5)
  1. REMICADE [Suspect]
     Indication: COLITIS ULCERATIVE
     Dosage: AFTER THE FIRST INFUSION, PATIENT RECEIVED INFUSION AT WEEK 2 AND WEEK 6.
     Route: 042
     Dates: start: 20130612
  2. SOLUPRED [Concomitant]
     Route: 048
     Dates: start: 20130517
  3. FIVASA [Concomitant]
     Route: 048
     Dates: start: 20130517
  4. RITALINE [Concomitant]
     Indication: ATTENTION DEFICIT/HYPERACTIVITY DISORDER
     Route: 048
  5. INEXIUM [Concomitant]
     Indication: GASTROOESOPHAGEAL REFLUX DISEASE
     Route: 048
     Dates: start: 20130517

REACTIONS (1)
  - Myocarditis [Recovered/Resolved]
